FAERS Safety Report 6912142-7 (Version None)
Quarter: 2010Q3

REPORT INFORMATION
  Report Type: 
  Country: None (occurrence: None)
  Receive Date: 20100806
  Receipt Date: 20071205
  Transmission Date: 20110219
  Serious: No
  Sender: FDA-Public Use
  Company Number: US-PFIZER INC-2007103084

PATIENT
  Sex: Female
  Weight: 100 kg

DRUGS (5)
  1. DETROL LA [Suspect]
     Indication: HYPERTONIC BLADDER
     Dates: start: 20071101
  2. LEVOTHYROXINE [Concomitant]
  3. ATENOLOL [Concomitant]
     Indication: HYPERTENSION
  4. TRIAZOLAM [Concomitant]
     Indication: SLEEP DISORDER
  5. VITAMIN TAB [Concomitant]

REACTIONS (2)
  - HEART RATE INCREASED [None]
  - HYPOHIDROSIS [None]
